FAERS Safety Report 7600805-X (Version None)
Quarter: 2011Q3

REPORT INFORMATION
  Report Type: 
  Country: None (occurrence: None)
  Receive Date: 20110711
  Receipt Date: 20110628
  Transmission Date: 20111222
  Serious: Yes (Other)
  Sender: FDA-Public Use
  Company Number: US-AMGEN-USASP2011032088

PATIENT
  Age: 48 Year
  Sex: Female

DRUGS (1)
  1. ENBREL [Suspect]
     Indication: ANKYLOSING SPONDYLITIS
     Dosage: 50 MG, QWK
     Dates: start: 20110531, end: 20110627

REACTIONS (10)
  - DEPRESSION [None]
  - HEADACHE [None]
  - DYSPNOEA [None]
  - BACK PAIN [None]
  - NAUSEA [None]
  - FATIGUE [None]
  - PAIN IN EXTREMITY [None]
  - PAIN [None]
  - CHEST PAIN [None]
  - DRUG INEFFECTIVE [None]
